FAERS Safety Report 25343609 (Version 1)
Quarter: 2025Q2

REPORT INFORMATION
  Report Type: Report from Study
  Country: US (occurrence: US)
  Receive Date: 20250521
  Receipt Date: 20250521
  Transmission Date: 20250717
  Serious: Yes (Hospitalization)
  Sender: BAYER HEALTHCARE PHARMACEUTICALS INC.
  Company Number: US-BAYER-2025A068236

PATIENT
  Age: 79 Year
  Sex: Male

DRUGS (1)
  1. STIVARGA [Suspect]
     Active Substance: REGORAFENIB MONOHYDRATE
     Indication: Colorectal cancer
     Dosage: 120 MG, QD FOR 3 WEEKS ON, 1 WEEK OFF
     Route: 048
     Dates: start: 20241206, end: 20250515

REACTIONS (2)
  - Cardiac disorder [Unknown]
  - Incorrect dose administered [None]

NARRATIVE: CASE EVENT DATE: 20241206
